FAERS Safety Report 5981370-X (Version None)
Quarter: 2008Q4

REPORT INFORMATION
  Report Type: 
  Country: None (occurrence: None)
  Receive Date: 20081205
  Receipt Date: 20081128
  Transmission Date: 20090506
  Serious: Yes (Hospitalization, Disabling, Other)
  Sender: FDA-Public Use
  Company Number: CA-WYE-G02669808

PATIENT
  Sex: Male

DRUGS (1)
  1. EFFEXOR XR [Suspect]
     Indication: ANXIETY
     Dosage: UNKNOWN
     Route: 048
     Dates: start: 20030901, end: 20050201

REACTIONS (10)
  - ABNORMAL BEHAVIOUR [None]
  - COGNITIVE DISORDER [None]
  - FAMILY STRESS [None]
  - FLAT AFFECT [None]
  - IMPAIRED WORK ABILITY [None]
  - PARTNER STRESS [None]
  - SUICIDE ATTEMPT [None]
  - THINKING ABNORMAL [None]
  - TREATMENT NONCOMPLIANCE [None]
  - UNEVALUABLE EVENT [None]
